FAERS Safety Report 18480428 (Version 1)
Quarter: 2020Q4

REPORT INFORMATION
  Report Type: Spontaneous
  Country: US (occurrence: US)
  Receive Date: 20201109
  Receipt Date: 20201109
  Transmission Date: 20210114
  Serious: Yes (Other)
  Sender: FDA-Public Use
  Company Number: None

PATIENT
  Age: 35 Year
  Sex: Female
  Weight: 74.39 kg

DRUGS (9)
  1. AIMOVIG [Concomitant]
     Active Substance: ERENUMAB-AOOE
  2. MULTIVATIMIN [Concomitant]
  3. WELLBUTRIN [Concomitant]
     Active Substance: BUPROPION HYDROCHLORIDE
  4. UBRELVY [Suspect]
     Active Substance: UBROGEPANT
     Indication: MIGRAINE
     Dosage: ?          QUANTITY:1 AT ONSET 1 AN HR; MAX 2 PER DAY 4 IN A WEEK?
     Route: 048
     Dates: start: 20200923
  5. KETORELAC [Concomitant]
  6. BENTYL [Concomitant]
     Active Substance: DICYCLOMINE HYDROCHLORIDE
  7. BOTOX [Concomitant]
     Active Substance: ONABOTULINUMTOXINA
  8. PROBIOTIC [Concomitant]
     Active Substance: PROBIOTICS NOS
  9. KLONOPIN [Concomitant]
     Active Substance: CLONAZEPAM

REACTIONS (4)
  - Therapy interrupted [None]
  - Product label issue [None]
  - Product storage error [None]
  - Insurance issue [None]

NARRATIVE: CASE EVENT DATE: 20201021
